FAERS Safety Report 5842082-6 (Version None)
Quarter: 2008Q3

REPORT INFORMATION
  Report Type: 
  Country: None (occurrence: None)
  Receive Date: 20080812
  Receipt Date: 20080730
  Transmission Date: 20090109
  Serious: Yes (Hospitalization)
  Sender: FDA-Public Use
  Company Number: BE-ROCHE-578589

PATIENT
  Sex: Female
  Weight: 54 kg

DRUGS (5)
  1. CAPECITABINE [Suspect]
     Dosage: FROM DAY 1 TO DAY 14
     Route: 048
     Dates: start: 20040311, end: 20061214
  2. VINORELBINE [Suspect]
     Dosage: 60 MG/M2 ON DAY 1 AND DAY 8 FOR CYCLE 1 AND THEN 80 MG/M2 FOR SUBSEQUENT CYCLES
     Route: 048
     Dates: start: 20040311, end: 20061214
  3. ZOMETA [Concomitant]
     Dates: start: 20020924
  4. DOMPERIDONE [Concomitant]
     Dates: start: 20040401
  5. LORAZEPAM [Concomitant]

REACTIONS (1)
  - MENINGITIS BACTERIAL [None]
